FAERS Safety Report 7864406-0 (Version None)
Quarter: 2011Q4

REPORT INFORMATION
  Report Type: 
  Country: None (occurrence: None)
  Receive Date: 20111028
  Receipt Date: 20111022
  Transmission Date: 20120403
  Serious: Yes (Hospitalization, Other)
  Sender: FDA-Public Use
  Company Number: PHHY2008BR00556

PATIENT
  Sex: Female
  Weight: 74 kg

DRUGS (14)
  1. INDAPAMIDE [Suspect]
     Dosage: ONE TABLET AT LUNCH TIME
     Dates: start: 20090319
  2. BROMAZEPAM [Concomitant]
     Dosage: UNK UKN, UNK
  3. METFORMIN HCL [Suspect]
     Indication: DIABETES MELLITUS
     Dosage: 850 MG, QD
     Route: 048
  4. SUSTRATE [Concomitant]
     Indication: PROMOTION OF PERIPHERAL CIRCULATION
     Dosage: UNK UKN, BID
     Route: 048
     Dates: start: 20060101, end: 20090218
  5. GALVUS [Suspect]
     Dosage: 100 MG
  6. ASPIRIN [Concomitant]
     Indication: PROMOTION OF PERIPHERAL CIRCULATION
     Dosage: UNK UKN, QD
     Dates: start: 20060101
  7. ATENOLOL/NIFEDIPINE [Suspect]
     Dosage: 10/5 MG
  8. GALANTAMINE HYDROBROMIDE [Concomitant]
     Indication: PROPHYLAXIS
     Dosage: 8 MG, UNK
     Route: 048
     Dates: start: 20060101, end: 20080301
  9. METFORMIN HYDROCHLORIDE [Concomitant]
     Indication: TYPE 2 DIABETES MELLITUS
     Dosage: 850 MG, BID
     Route: 048
     Dates: start: 20050101
  10. METFORMIN HCL [Suspect]
     Dosage: UNK UKN, UNK
  11. ACETAMINOPHEN [Concomitant]
     Indication: PYREXIA
     Dosage: UNK UKN, UNK
     Route: 048
  12. VISKALDIX [Concomitant]
     Indication: BLOOD PRESSURE MANAGEMENT
     Dosage: UNK UKN, QD
     Route: 048
     Dates: start: 20000101, end: 20090219
  13. GALVUS [Suspect]
     Indication: DIABETES MELLITUS
     Dosage: 100 MG, QD
     Route: 048
  14. GALVUS MET COMBIPACK [Suspect]
     Indication: TYPE 2 DIABETES MELLITUS
     Dosage: UNK UKN, UNK

REACTIONS (20)
  - INFARCTION [None]
  - FEELING ABNORMAL [None]
  - PALLOR [None]
  - MYOCARDIAL ISCHAEMIA [None]
  - FEELING COLD [None]
  - DILATATION VENTRICULAR [None]
  - CARDIAC DISORDER [None]
  - HEART RATE INCREASED [None]
  - PYREXIA [None]
  - BLOOD GLUCOSE INCREASED [None]
  - MUSCULAR WEAKNESS [None]
  - ARTERIAL STENOSIS [None]
  - SENSATION OF HEAVINESS [None]
  - HYPOGLYCAEMIA [None]
  - DIARRHOEA [None]
  - ASTHENIA [None]
  - ROTAVIRUS INFECTION [None]
  - INCORRECT DOSE ADMINISTERED [None]
  - BLOOD PRESSURE INCREASED [None]
  - APPETITE DISORDER [None]
